FAERS Safety Report 5224749-6 (Version None)
Quarter: 2007Q1

REPORT INFORMATION
  Report Type: 
  Country: None (occurrence: None)
  Receive Date: 20070129
  Receipt Date: 20070129
  Transmission Date: 20070707
  Serious: Yes (Life-Threatening, Hospitalization)
  Sender: FDA-Public Use
  Company Number: None

PATIENT
  Age: 49 Year
  Sex: Female
  Weight: 72.5755 kg

DRUGS (1)
  1. LAMISIL [Suspect]
     Indication: ONYCHOMYCOSIS
     Dosage: 1 TABLET  DAILY  PO
     Route: 048
     Dates: start: 20031111, end: 20031210

REACTIONS (15)
  - ABDOMINAL PAIN UPPER [None]
  - BACTERIAL INFECTION [None]
  - BLOOD POTASSIUM DECREASED [None]
  - FAECES PALE [None]
  - HEADACHE [None]
  - IMMUNE SYSTEM DISORDER [None]
  - INFLAMMATION [None]
  - INFLUENZA LIKE ILLNESS [None]
  - LIVER DISORDER [None]
  - LIVER FUNCTION TEST ABNORMAL [None]
  - NAUSEA [None]
  - PHARYNGOLARYNGEAL PAIN [None]
  - PYREXIA [None]
  - URINE COLOUR ABNORMAL [None]
  - VISUAL DISTURBANCE [None]
